FAERS Safety Report 6186733-8 (Version None)
Quarter: 2009Q2

REPORT INFORMATION
  Report Type: 
  Country: None (occurrence: None)
  Receive Date: 20090508
  Receipt Date: 20090424
  Transmission Date: 20091009
  Serious: No
  Sender: FDA-Public Use
  Company Number: 8045305

PATIENT
  Age: 73 Year
  Sex: Male

DRUGS (11)
  1. KEPPRA [Suspect]
     Dosage: 1000 MG 2/D
     Dates: start: 20090301
  2. NEXIUM [Concomitant]
  3. ATENOLOL [Concomitant]
  4. ATIVAN [Concomitant]
  5. LASIX [Concomitant]
  6. AMITRIPTLINE HYDROCHLORIDE TAB [Concomitant]
  7. RISPERDAL [Concomitant]
  8. HUMALOG [Concomitant]
  9. LANTUS [Concomitant]
  10. PEPCID [Concomitant]
  11. GLIPIZIDE [Concomitant]

REACTIONS (1)
  - DRUG ADMINISTRATION ERROR [None]
